FAERS Safety Report 8827219 (Version 5)
Quarter: 2013Q1

REPORT INFORMATION
  Report Type: Spontaneous
  Country: US (occurrence: US)
  Receive Date: 20121008
  Receipt Date: 20130214
  Transmission Date: 20140127
  Serious: No
  Sender: FDA-Public Use
  Company Number: US-BIOGENIDEC-2012BI043015

PATIENT
  Age: 72 None
  Sex: Female

DRUGS (6)
  1. AVONEX [Suspect]
     Indication: MULTIPLE SCLEROSIS
     Route: 030
  2. AVONEX [Suspect]
     Indication: MULTIPLE SCLEROSIS
     Route: 030
     Dates: start: 19961201
  3. AVONEX [Suspect]
     Indication: MULTIPLE SCLEROSIS
     Route: 030
  4. AVONEX [Suspect]
     Indication: MULTIPLE SCLEROSIS
     Route: 030
     Dates: end: 20120923
  5. AVONEX [Suspect]
     Indication: MULTIPLE SCLEROSIS
     Route: 030
     Dates: start: 20120930
  6. AVONEX [Suspect]
     Indication: MULTIPLE SCLEROSIS
     Route: 030

REACTIONS (14)
  - Nervous system disorder [Recovered/Resolved]
  - Crying [Recovered/Resolved]
  - Stress [Recovered/Resolved]
  - Tremor [Recovered/Resolved]
  - Tension [Recovered/Resolved]
  - Nervousness [Recovered/Resolved]
  - Memory impairment [Recovered/Resolved]
  - Injection site scar [Recovered/Resolved]
  - Cognitive disorder [Not Recovered/Not Resolved]
  - Injection site laceration [Not Recovered/Not Resolved]
  - Injection site pain [Recovered/Resolved]
  - Feeling abnormal [Unknown]
  - Muscle spasms [Unknown]
  - Headache [Unknown]
